FAERS Safety Report 20379096 (Version 2)
Quarter: 2022Q1

REPORT INFORMATION
  Report Type: Spontaneous
  Country: DK (occurrence: DK)
  Receive Date: 20220126
  Receipt Date: 20220214
  Transmission Date: 20220424
  Serious: Yes (Hospitalization)
  Sender: FDA-Public Use
  Company Number: None

PATIENT
  Age: 96 Year
  Sex: Female
  Weight: 50 kg

DRUGS (5)
  1. PRADAXA [Suspect]
     Active Substance: DABIGATRAN ETEXILATE MESYLATE
     Indication: Anticoagulant therapy
     Route: 048
     Dates: start: 20211026, end: 20211115
  2. FERROUS FUMARATE [Concomitant]
     Active Substance: FERROUS FUMARATE
     Indication: Iodine deficiency
     Dates: start: 20211129
  3. PANTOPRAZOLE [Concomitant]
     Active Substance: PANTOPRAZOLE
     Indication: Prophylaxis against gastrointestinal ulcer
     Dates: start: 201909
  4. FUROSEMIDE [Concomitant]
     Active Substance: FUROSEMIDE
     Indication: Diuretic therapy
     Dates: start: 20200225
  5. DIGOXIN [Concomitant]
     Active Substance: DIGOXIN
     Indication: Heart rate abnormal
     Dates: start: 202103

REACTIONS (2)
  - Anaemia [Not Recovered/Not Resolved]
  - Dyspnoea [Unknown]

NARRATIVE: CASE EVENT DATE: 20211101
